FAERS Safety Report 24390999 (Version 2)
Quarter: 2024Q4

REPORT INFORMATION
  Report Type: Report from Study
  Country: US (occurrence: US)
  Receive Date: 20241003
  Receipt Date: 20241025
  Transmission Date: 20250114
  Serious: Yes (Other)
  Sender: TEVA
  Company Number: US-TEVA-VS-3248885

PATIENT
  Age: 60 Year
  Sex: Female

DRUGS (3)
  1. METHOTREXATE [Suspect]
     Active Substance: METHOTREXATE
     Indication: Ocular pemphigoid
     Route: 065
  2. LOTEPREDNOL [Suspect]
     Active Substance: LOTEPREDNOL
     Indication: Ocular pemphigoid
     Route: 061
  3. TACROLIMUS [Suspect]
     Active Substance: TACROLIMUS
     Indication: Ocular pemphigoid
     Route: 061

REACTIONS (3)
  - Sebaceous carcinoma [Unknown]
  - Metastatic neoplasm [Unknown]
  - Glaucoma [Unknown]
